FAERS Safety Report 4685979-5 (Version None)
Quarter: 2005Q2

REPORT INFORMATION
  Report Type: 
  Country: None (occurrence: None)
  Receive Date: 20050609
  Receipt Date: 20050601
  Transmission Date: 20051028
  Serious: Yes (Hospitalization, Other)
  Sender: FDA-Public Use
  Company Number: 200515081GDDC

PATIENT
  Age: 64 Year
  Sex: Female

DRUGS (3)
  1. ARAVA [Suspect]
     Route: 048
     Dates: start: 20040330, end: 20040331
  2. DALACIN C [Concomitant]
     Dosage: DOSE: 300 X 3
     Route: 048
  3. ARTHROTEC [Concomitant]
     Route: 048
     Dates: start: 20040318, end: 20040402

REACTIONS (7)
  - BLOOD CREATINE PHOSPHOKINASE INCREASED [None]
  - C-REACTIVE PROTEIN INCREASED [None]
  - LEUKOCYTOSIS [None]
  - MYALGIA [None]
  - MYOSITIS [None]
  - PYREXIA [None]
  - TRANSAMINASES INCREASED [None]
